FAERS Safety Report 18151327 (Version 1)
Quarter: 2020Q3

REPORT INFORMATION
  Report Type: Spontaneous
  Country: US (occurrence: US)
  Receive Date: 20200814
  Receipt Date: 20200814
  Transmission Date: 20201103
  Serious: Yes (Hospitalization)
  Sender: FDA-Public Use
  Company Number: None

PATIENT
  Age: 48 Year
  Sex: Female

DRUGS (3)
  1. CEPHALEXIN. [Concomitant]
     Active Substance: CEPHALEXIN
  2. LEVOFLOXACIN. [Concomitant]
     Active Substance: LEVOFLOXACIN
  3. BOTOX [Suspect]
     Active Substance: ONABOTULINUMTOXINA
     Indication: MIGRAINE
     Dosage: ?          OTHER FREQUENCY:Q3M;?
     Route: 030
     Dates: start: 20160621

REACTIONS (1)
  - Seizure [None]

NARRATIVE: CASE EVENT DATE: 20200813
